FAERS Safety Report 8516627-1 (Version None)
Quarter: 2012Q3

REPORT INFORMATION
  Report Type: 
  Country: None (occurrence: None)
  Receive Date: 20120718
  Receipt Date: 20120710
  Transmission Date: 20120928
  Serious: Yes (Other)
  Sender: FDA-Public Use
  Company Number: US-JNJFOC-20120706637

PATIENT
  Sex: Female

DRUGS (2)
  1. DOXIL [Suspect]
     Indication: NEOPLASM MALIGNANT
     Dosage: OVER 1 HOUR, EVERY 4 WEEKS
     Route: 042
  2. PLACEBO [Suspect]
     Indication: PROPHYLAXIS
     Dosage: THE FIRST MORNING BEFORE THE PLD INFUSION AND TWICE DAILY THEREAFTER
     Route: 048

REACTIONS (2)
  - HYPERSENSITIVITY [None]
  - IMMUNOLOGY TEST ABNORMAL [None]
